FAERS Safety Report 6593411-X (Version None)
Quarter: 2010Q1

REPORT INFORMATION
  Report Type: 
  Country: None (occurrence: None)
  Receive Date: 20100222
  Receipt Date: 20090414
  Transmission Date: 20100710
  Serious: Yes (Other)
  Sender: FDA-Public Use
  Company Number: US-BRISTOL-MYERS SQUIBB COMPANY-14575583

PATIENT
  Sex: Male
  Weight: 109 kg

DRUGS (3)
  1. ORENCIA [Suspect]
     Indication: RHEUMATOID ARTHRITIS
     Dosage: 1 DOSAGE FORM = 4 VIALS NO. OF COURSES 1
     Route: 042
     Dates: start: 20090326
  2. OXYCODONE HCL [Concomitant]
     Indication: RHEUMATOID ARTHRITIS
     Dates: start: 20090310
  3. AMBIEN [Concomitant]
     Indication: INSOMNIA

REACTIONS (1)
  - INFUSION RELATED REACTION [None]
